FAERS Safety Report 10630654 (Version 1)
Quarter: 2014Q4

REPORT INFORMATION
  Report Type: Spontaneous
  Country: US (occurrence: US)
  Receive Date: 20141205
  Receipt Date: 20141205
  Transmission Date: 20150529
  Serious: No
  Sender: FDA-Public Use
  Company Number: US-BRISTOL-MYERS SQUIBB COMPANY-21311477

PATIENT
  Age: 61 Year
  Sex: Female

DRUGS (2)
  1. SPRYCEL [Suspect]
     Active Substance: DASATINIB
     Indication: CHROMOSOME ANALYSIS ABNORMAL
     Route: 048
  2. SPRYCEL [Suspect]
     Active Substance: DASATINIB
     Indication: ACUTE LEUKAEMIA
     Route: 048

REACTIONS (1)
  - Rash [Unknown]
